FAERS Safety Report 13007434 (Version 1)
Quarter: 2016Q4

REPORT INFORMATION
  Report Type: Spontaneous
  Country: CO (occurrence: CO)
  Receive Date: 20161207
  Receipt Date: 20161207
  Transmission Date: 20170207
  Serious: Yes (Other)
  Sender: FDA-Public Use
  Company Number: CO-PFIZER INC-2016562961

PATIENT
  Sex: Female

DRUGS (5)
  1. IBUPROFEN. [Suspect]
     Active Substance: IBUPROFEN
     Dosage: UNK
  2. DOLEX FORTE [Suspect]
     Active Substance: ACETAMINOPHEN\CAFFEINE
     Dosage: UNK
  3. ADVIL ULTRA (CAFFEINE\IBUPROFEN) [Suspect]
     Active Substance: CAFFEINE\IBUPROFEN
     Dosage: UNK
  4. MIGRANOL (ACETAMINOPHEN\ATROPINE\CAFFEINE\NIACIN\PAPAVERINE) [Suspect]
     Active Substance: ACETAMINOPHEN\ATROPINE\CAFFEINE\NIACIN\PAPAVERINE
     Dosage: UNK
  5. SEVEDOL [Suspect]
     Active Substance: ACETAMINOPHEN\ASPIRIN\CAFFEINE
     Dosage: UNK

REACTIONS (1)
  - Drug dependence [Unknown]
